FAERS Safety Report 7954075-3 (Version None)
Quarter: 2011Q4

REPORT INFORMATION
  Report Type: 
  Country: None (occurrence: None)
  Receive Date: 20111202
  Receipt Date: 20111122
  Transmission Date: 20120403
  Serious: Yes (Hospitalization)
  Sender: FDA-Public Use
  Company Number: US-BAYER-2011-027234

PATIENT
  Age: 32 Year
  Sex: Female
  Weight: 114 kg

DRUGS (9)
  1. BACTRIM DS [Concomitant]
  2. ZOSYN [Concomitant]
  3. AZITHROMYCIN [Concomitant]
     Dosage: UNK
     Dates: start: 20070101, end: 20090101
  4. NSAID'S [Concomitant]
  5. DICYCLOMINE [Concomitant]
     Dosage: UNK
     Route: 048
     Dates: start: 20090131
  6. IBUPROFEN [Concomitant]
     Dosage: UNK
     Route: 048
     Dates: start: 20090131
  7. PAIN MEDICINE [Concomitant]
  8. CATAPRES [Concomitant]
  9. YASMIN [Suspect]
     Indication: CONTRACEPTION
     Dosage: UNK
     Route: 048
     Dates: start: 20080401, end: 20081201

REACTIONS (8)
  - CHOLECYSTITIS INFECTIVE [None]
  - ANXIETY [None]
  - INJURY [None]
  - GENERAL PHYSICAL HEALTH DETERIORATION [None]
  - PAIN [None]
  - EMOTIONAL DISTRESS [None]
  - GALLBLADDER DISORDER [None]
  - ABDOMINAL PAIN [None]
